FAERS Safety Report 5817891-X (Version None)
Quarter: 2008Q3

REPORT INFORMATION
  Report Type: 
  Country: None (occurrence: None)
  Receive Date: 20080722
  Receipt Date: 20070626
  Transmission Date: 20090109
  Serious: Yes (Other)
  Sender: FDA-Public Use
  Company Number: US-BAYER-US-2007-023790

PATIENT
  Age: 48 Year
  Sex: Male
  Weight: 91 kg

DRUGS (1)
  1. MAGNEVIST [Suspect]
     Indication: NUCLEAR MAGNETIC RESONANCE IMAGING
     Dosage: UNIT DOSE: 18 ML
     Route: 042
     Dates: start: 20070625, end: 20070625

REACTIONS (4)
  - DYSPNOEA [None]
  - ERYTHEMA [None]
  - RHINORRHOEA [None]
  - SNEEZING [None]
